FAERS Safety Report 15576784 (Version 1)
Quarter: 2018Q4

REPORT INFORMATION
  Report Type: Spontaneous
  Country: US (occurrence: US)
  Receive Date: 20181101
  Receipt Date: 20181101
  Transmission Date: 20190205
  Serious: Yes (Other)
  Sender: FDA-Public Use
  Company Number: PHEH2018US045592

PATIENT
  Sex: Female

DRUGS (1)
  1. RECLAST [Suspect]
     Active Substance: ZOLEDRONIC ACID
     Indication: PRODUCT USED FOR UNKNOWN INDICATION
     Dosage: UNK UNK, Q12MO
     Route: 042
     Dates: start: 20170928

REACTIONS (8)
  - Loose tooth [Unknown]
  - Arthralgia [Unknown]
  - Headache [Unknown]
  - Osteoporosis [Unknown]
  - Pain in extremity [Unknown]
  - Fatigue [Unknown]
  - Jaw disorder [Unknown]
  - Pain in jaw [Unknown]
